FAERS Safety Report 24307669 (Version 2)
Quarter: 2024Q3

REPORT INFORMATION
  Report Type: Spontaneous
  Country: JP (occurrence: JP)
  Receive Date: 20240911
  Receipt Date: 20240924
  Transmission Date: 20241016
  Serious: Yes (Life-Threatening, Hospitalization, Other)
  Sender: PFIZER
  Company Number: JP-PFIZER INC-PV202400117573

PATIENT
  Age: 60 Year
  Sex: Male

DRUGS (4)
  1. METHYLPREDNISOLONE SODIUM SUCCINATE [Suspect]
     Active Substance: METHYLPREDNISOLONE SODIUM SUCCINATE
     Indication: Cytokine release syndrome
     Dosage: 1000 MG, 1X/DAY
     Route: 042
  2. METHYLPREDNISOLONE SODIUM SUCCINATE [Suspect]
     Active Substance: METHYLPREDNISOLONE SODIUM SUCCINATE
     Dosage: 120 MG, 1X/DAY
     Route: 042
  3. HYDROCORTISONE [Suspect]
     Active Substance: HYDROCORTISONE\HYDROCORTISONE ACETATE
     Indication: Adrenal insufficiency
     Dosage: UNK
  4. CEFMETAZOLE [Suspect]
     Active Substance: CEFMETAZOLE
     Indication: Cytokine release syndrome
     Dosage: UNK

REACTIONS (1)
  - Drug ineffective [Recovered/Resolved]
